FAERS Safety Report 9988697 (Version 1)
Quarter: 2014Q1

REPORT INFORMATION
  Report Type: Spontaneous
  Country: FR (occurrence: FR)
  Receive Date: 20140310
  Receipt Date: 20140310
  Transmission Date: 20141002
  Serious: Yes (Hospitalization)
  Sender: FDA-Public Use
  Company Number: FR-009507513-1402FRA013614

PATIENT
  Age: 33 Year
  Sex: Female

DRUGS (3)
  1. PUREGON [Suspect]
     Indication: IN VITRO FERTILISATION
     Dosage: 200 IU QD
     Route: 058
     Dates: start: 20130815, end: 20130823
  2. ORGALUTRAN [Suspect]
     Indication: IN VITRO FERTILISATION
     Dosage: 1 VIAL QD (1 DF)
     Dates: start: 20130821, end: 20130823
  3. OVITRELLE [Suspect]
     Indication: IN VITRO FERTILISATION
     Dosage: 1 VIAL QD  (1DF)
     Dates: start: 20130824, end: 20130824

REACTIONS (1)
  - Pelvic fluid collection [Recovered/Resolved]
